FAERS Safety Report 9015608 (Version 2)
Quarter: 2013Q1

REPORT INFORMATION
  Report Type: Spontaneous
  Country: US (occurrence: None)
  Receive Date: 20130102
  Receipt Date: 20130204
  Transmission Date: 20140127
  Serious: Yes (Death)
  Sender: FDA-Public Use
  Company Number: DSA_60700_2012

PATIENT
  Sex: Female

DRUGS (3)
  1. XENAZINE 25 MG (NOT SPECIFIED) [Suspect]
     Indication: PRODUCT USED FOR UNKNOWN INDICATION
     Dosage: (DF)
     Route: 048
  2. HALDOL /00027401/ [Concomitant]
  3. EVISTA [Concomitant]

REACTIONS (2)
  - Fatigue [None]
  - Hypersomnia [None]
